FAERS Safety Report 18706181 (Version 2)
Quarter: 2025Q2

REPORT INFORMATION
  Report Type: Spontaneous
  Country: TR (occurrence: TR)
  Receive Date: 20210106
  Receipt Date: 20250609
  Transmission Date: 20250717
  Serious: Yes (Hospitalization, Other)
  Sender: NOVARTIS
  Company Number: TR-NOVARTISPH-NVSC2021TR001556

PATIENT
  Age: 70 Year
  Sex: Female

DRUGS (1)
  1. OXCARBAZEPINE [Suspect]
     Active Substance: OXCARBAZEPINE
     Indication: Trigeminal neuralgia
     Dosage: 150 MG, BID
     Route: 065

REACTIONS (5)
  - Acute kidney injury [Unknown]
  - Rhabdomyolysis [Unknown]
  - Somnolence [Unknown]
  - Dysuria [Unknown]
  - Product use in unapproved indication [Unknown]
